FAERS Safety Report 5906223-4 (Version None)
Quarter: 2008Q4

REPORT INFORMATION
  Report Type: 
  Country: None (occurrence: None)
  Receive Date: 20081002
  Receipt Date: 20080922
  Transmission Date: 20090506
  Serious: Yes (Death, Other)
  Sender: FDA-Public Use
  Company Number: US-PFIZER INC-2008057453

PATIENT
  Age: 43 Year
  Sex: Male

DRUGS (8)
  1. SINEQUAN [Suspect]
     Indication: SCHIZOPHRENIA, PARANOID TYPE
     Route: 048
     Dates: start: 20071009, end: 20071013
  2. SINEQUAN [Suspect]
     Indication: DEPRESSION
     Route: 048
     Dates: start: 20071014, end: 20071113
  3. SINEQUAN [Suspect]
     Route: 048
     Dates: start: 20071114
  4. ALCOHOL [Suspect]
  5. SEROQUEL [Suspect]
     Indication: HALLUCINATION, OLFACTORY
     Dosage: DAILY DOSE:400MG
     Dates: start: 20080226
  6. HALOPERIDOL DECANOATE [Concomitant]
  7. HALDOL [Concomitant]
     Dosage: DAILY DOSE:10MG
  8. COGENTIN [Concomitant]
     Dosage: DAILY DOSE:4MG

REACTIONS (4)
  - ANTIDEPRESSANT DRUG LEVEL ABOVE THERAPEUTIC [None]
  - DEATH [None]
  - DRUG TOXICITY [None]
  - OVERDOSE [None]
